FAERS Safety Report 21258715 (Version 1)
Quarter: 2022Q3

REPORT INFORMATION
  Report Type: Report from Study
  Country: US (occurrence: US)
  Receive Date: 20220826
  Receipt Date: 20220826
  Transmission Date: 20221027
  Serious: Yes (Death)
  Sender: FDA-Public Use
  Company Number: US-RECORDATI-2022003995

PATIENT

DRUGS (11)
  1. SIGNIFOR [Suspect]
     Active Substance: PASIREOTIDE DIASPARTATE
     Indication: Cushing^s syndrome
     Dosage: 0.3 MILLIGRAM, BID
     Route: 058
     Dates: start: 202207
  2. CAPRA [Concomitant]
     Indication: Seizure
     Dosage: 2000 MILLIGRAM, BID
  3. LAMOTRIGINE [Concomitant]
     Active Substance: LAMOTRIGINE
     Indication: Product used for unknown indication
     Dosage: 200, BEFORE MEALS
  4. OMEPRAZOLE [Concomitant]
     Active Substance: OMEPRAZOLE
     Indication: Ulcer
     Dosage: 20 MILLIGRAM, BID
  5. ZONISAMIDE [Concomitant]
     Active Substance: ZONISAMIDE
     Indication: Seizure
     Dosage: 100, QD (AT NIGHT)
  6. ONDANSETRON [Concomitant]
     Active Substance: ONDANSETRON
     Indication: Nausea
     Dosage: 8 MILLIGRAM, PRN
  7. PREDNISONE [Concomitant]
     Active Substance: PREDNISONE
     Indication: Hypoglycaemia
     Dosage: 20 MILLIGRAM, QD (AT NIGHT)
  8. ZINC GLUCONATE [Concomitant]
     Active Substance: ZINC GLUCONATE
     Indication: Hypovitaminosis
     Dosage: 50, QD (QAM-EVERY MORNING)
  9. VITAMINS [Concomitant]
     Active Substance: VITAMINS
     Indication: Routine health maintenance
     Dosage: UNK, QD (QAM-EVERY MORNING)
  10. OXYCODONE [Concomitant]
     Active Substance: OXYCODONE
     Indication: Pain
     Dosage: 5, PRN
  11. SENNA LEAF [Concomitant]
     Active Substance: SENNA LEAF
     Indication: Laxative supportive care
     Dosage: 8.6, BID
     Route: 048

REACTIONS (2)
  - Death [Fatal]
  - Off label use [Recovered/Resolved]

NARRATIVE: CASE EVENT DATE: 20220701
